FAERS Safety Report 19897209 (Version 1)
Quarter: 2021Q3

REPORT INFORMATION
  Report Type: Spontaneous
  Country: US (occurrence: US)
  Receive Date: 20210930
  Receipt Date: 20210930
  Transmission Date: 20211014
  Serious: No
  Sender: FDA-Public Use
  Company Number: US-BRISTOL-MYERS SQUIBB COMPANY-BMS-2021-099583

PATIENT
  Age: 50 Year
  Sex: Female

DRUGS (4)
  1. OPDIVO [Suspect]
     Active Substance: NIVOLUMAB
     Indication: METASTASES TO BONE MARROW
  2. CABOMETYX [Suspect]
     Active Substance: CABOZANTINIB S-MALATE
     Indication: METASTASES TO BONE
     Dosage: 40 MILLIGRAM, QD
     Route: 065
     Dates: start: 202105
  3. OPDIVO [Suspect]
     Active Substance: NIVOLUMAB
     Indication: METASTASES TO BONE
     Dosage: 480 MILLIGRAM, Q4WK
     Route: 042
  4. CABOMETYX [Suspect]
     Active Substance: CABOZANTINIB S-MALATE
     Indication: METASTASES TO BONE MARROW

REACTIONS (12)
  - Peripheral swelling [Recovering/Resolving]
  - Skin depigmentation [Recovered/Resolved]
  - Decreased appetite [Not Recovered/Not Resolved]
  - Product dose omission issue [Unknown]
  - Rash [Recovered/Resolved]
  - Pain of skin [Recovered/Resolved]
  - Stomatitis [Unknown]
  - Vomiting [Not Recovered/Not Resolved]
  - Off label use [Unknown]
  - Erythema [Recovered/Resolved]
  - Taste disorder [Unknown]
  - Nausea [Not Recovered/Not Resolved]
